FAERS Safety Report 8302610-8 (Version None)
Quarter: 2012Q2

REPORT INFORMATION
  Report Type: 
  Country: None (occurrence: None)
  Receive Date: 20120418
  Receipt Date: 20120409
  Transmission Date: 20120825
  Serious: Yes (Other)
  Sender: FDA-Public Use
  Company Number: NSR_00532_2012

PATIENT
  Sex: Male
  Weight: 76.2043 kg

DRUGS (3)
  1. LAMICTAL [Concomitant]
  2. LAMOTRIGINE [Suspect]
     Indication: POST-TRAUMATIC EPILEPSY
     Dosage: (300 MG BID ORAL)
     Route: 048
     Dates: start: 20120220, end: 20120308
  3. ANTACID /01054901/ [Concomitant]

REACTIONS (6)
  - PRODUCT SUBSTITUTION ISSUE [None]
  - DRUG INEFFECTIVE [None]
  - CONVULSION [None]
  - ABNORMAL BEHAVIOUR [None]
  - PRODUCT QUALITY ISSUE [None]
  - CONDITION AGGRAVATED [None]
